FAERS Safety Report 5652466-7 (Version None)
Quarter: 2008Q1

REPORT INFORMATION
  Report Type: 
  Country: None (occurrence: None)
  Receive Date: 20080305
  Receipt Date: 20080305
  Transmission Date: 20080703
  Serious: Yes (Other)
  Sender: FDA-Public Use
  Company Number: None

PATIENT
  Age: 46 Year
  Sex: Male
  Weight: 95.709 kg

DRUGS (2)
  1. RISPERDAL [Suspect]
     Indication: SCHIZOPHRENIA, UNDIFFERENTIATED TYPE
     Dosage: 4MG ONE AT BEDTIME PO
     Route: 048
     Dates: start: 19991206, end: 20080226
  2. KLONOPIN [Concomitant]

REACTIONS (1)
  - EYELID FUNCTION DISORDER [None]
